FAERS Safety Report 18469472 (Version 2)
Quarter: 2020Q4

REPORT INFORMATION
  Report Type: Report from Study
  Country: FR (occurrence: FR)
  Receive Date: 20201105
  Receipt Date: 20201117
  Transmission Date: 20210114
  Serious: Yes (Hospitalization)
  Sender: FDA-Public Use
  Company Number: FR-BAYER-2020-239809

PATIENT
  Age: 54 Year
  Sex: Male

DRUGS (1)
  1. INTERFERON BETA - 1B [Suspect]
     Active Substance: INTERFERON BETA-1B
     Indication: COVID-19
     Dosage: 9.6 MIU, 2 DAILY DURING 48 HOURS THEN DAILY
     Route: 055
     Dates: start: 20200921, end: 20201003

REACTIONS (4)
  - Cholestasis [Recovered/Resolved]
  - Pulmonary embolism [None]
  - Hepatocellular injury [Recovered/Resolved]
  - Phlebitis [Recovering/Resolving]

NARRATIVE: CASE EVENT DATE: 20200922
